FAERS Safety Report 12804070 (Version 1)
Quarter: 2016Q4

REPORT INFORMATION
  Report Type: Spontaneous
  Country: US (occurrence: US)
  Receive Date: 20161002
  Receipt Date: 20161002
  Transmission Date: 20170207
  Serious: Yes (Life-Threatening, Hospitalization, Disabling, Other)
  Sender: FDA-Public Use
  Company Number: None

PATIENT
  Age: 1 Year
  Sex: Male

DRUGS (2)
  1. ORALGEL TEETHING TABS [Suspect]
     Active Substance: HOMEOPATHICS
     Indication: TEETHING
     Dosage: OTHER EVERY 6 HOURS ORAL
     Route: 048
  2. BABY TEETHING (HYLAND HOMEOPATHIC) [Suspect]
     Active Substance: HOMEOPATHICS
     Indication: TEETHING
     Dosage: OTHER EVERY 6 HOURS ORAL
     Route: 048

REACTIONS (3)
  - Malaise [None]
  - Neoplasm malignant [None]
  - Neuroblastoma [None]

NARRATIVE: CASE EVENT DATE: 20121107
